FAERS Safety Report 24544298 (Version 1)
Quarter: 2024Q4

REPORT INFORMATION
  Report Type: Spontaneous
  Country: US (occurrence: US)
  Receive Date: 20241024
  Receipt Date: 20241024
  Transmission Date: 20250115
  Serious: Yes (Life-Threatening, Hospitalization)
  Sender: MACLEODS
  Company Number: US-MACLEODS PHARMA-MAC2024049948

PATIENT

DRUGS (2)
  1. TRIAMCINOLONE [Suspect]
     Active Substance: TRIAMCINOLONE
     Indication: Osteoarthritis
     Dosage: INTRAARTICULAR SHOULDER INJECTION
     Route: 014
     Dates: start: 201912
  2. LIDOCAINE [Concomitant]
     Active Substance: LIDOCAINE
     Indication: Osteoarthritis
     Dosage: INTRAARTICULAR SHOULDER INJECTION
     Route: 014
     Dates: start: 201912

REACTIONS (1)
  - Anaphylactic shock [Unknown]

NARRATIVE: CASE EVENT DATE: 20191201
